FAERS Safety Report 8925432 (Version 4)
Quarter: 2018Q3

REPORT INFORMATION
  Report Type: Report from Study
  Country: GB (occurrence: GB)
  Receive Date: 20121126
  Receipt Date: 20180816
  Transmission Date: 20181010
  Serious: Yes (Death)
  Sender: FDA-Public Use
  Company Number: GB-ROCHE-1157171

PATIENT
  Age: 77 Year
  Sex: Male

DRUGS (1)
  1. RITUXIMAB. [Suspect]
     Active Substance: RITUXIMAB
     Indication: RHEUMATOID ARTHRITIS
     Route: 065
     Dates: start: 20080711

REACTIONS (4)
  - Chloroma [Fatal]
  - Myelodysplastic syndrome [Fatal]
  - Subdural haematoma [Fatal]
  - Chloroma [Fatal]

NARRATIVE: CASE EVENT DATE: 20120327
